FAERS Safety Report 14035506 (Version 3)
Quarter: 2017Q4

REPORT INFORMATION
  Report Type: Spontaneous
  Country: FR (occurrence: FR)
  Receive Date: 20171003
  Receipt Date: 20171018
  Transmission Date: 20180321
  Serious: Yes (Hospitalization)
  Sender: FDA-Public Use
  Company Number: FR-PFIZER INC-2017420278

PATIENT
  Age: 52 Year
  Sex: Male

DRUGS (4)
  1. TRAMADOL HYDROCHLORIDE. [Concomitant]
     Active Substance: TRAMADOL HYDROCHLORIDE
     Indication: PROCEDURAL PAIN
     Dosage: UNK, SINGLE
     Route: 048
     Dates: start: 20170730, end: 20170730
  2. RABEPRAZOLE SODIUM. [Concomitant]
     Active Substance: RABEPRAZOLE SODIUM
     Dosage: 20 MG, DAILY
     Route: 048
  3. FUCIDINE /00065701/ [Suspect]
     Active Substance: FUSIDIC ACID
     Indication: INFECTION
     Dosage: 500 MG, 3X/DAY
     Route: 048
     Dates: start: 20170815, end: 20170829
  4. ADVIL [Suspect]
     Active Substance: IBUPROFEN
     Indication: PYREXIA
     Dosage: 400 MG, 1X/DAY
     Route: 048
     Dates: start: 20170829, end: 20170831

REACTIONS (2)
  - Rash [Recovering/Resolving]
  - Hyperthermia [Recovered/Resolved]

NARRATIVE: CASE EVENT DATE: 20170829
